FAERS Safety Report 17900534 (Version 1)
Quarter: 2020Q2

REPORT INFORMATION
  Report Type: Spontaneous
  Country: US (occurrence: US)
  Receive Date: 20200615
  Receipt Date: 20200615
  Transmission Date: 20200714
  Serious: Yes (Death)
  Sender: FDA-Public Use
  Company Number: None

PATIENT
  Age: 60 Year
  Sex: Male
  Weight: 75.15 kg

DRUGS (16)
  1. ROCEPHIN [Concomitant]
     Active Substance: CEFTRIAXONE SODIUM
  2. NOREPINEPHRINE. [Concomitant]
     Active Substance: NOREPINEPHRINE
  3. BICARBONATE [Concomitant]
     Active Substance: SODIUM BICARBONATE
  4. ZITHROMAX [Concomitant]
     Active Substance: AZITHROMYCIN DIHYDRATE
  5. ATORVASTATIN [Concomitant]
     Active Substance: ATORVASTATIN
  6. LOVENOX [Concomitant]
     Active Substance: ENOXAPARIN SODIUM
  7. METOPROLOL. [Concomitant]
     Active Substance: METOPROLOL
  8. CALCIUM GLUCONATE. [Concomitant]
     Active Substance: CALCIUM GLUCONATE
  9. LORAZEPAM. [Concomitant]
     Active Substance: LORAZEPAM
  10. REMDESIVIR. [Suspect]
     Active Substance: REMDESIVIR
     Indication: COVID-19
     Route: 041
  11. MORPHINE [Concomitant]
     Active Substance: MORPHINE
  12. PROPOFOL. [Concomitant]
     Active Substance: PROPOFOL
  13. PROTONIX [Concomitant]
     Active Substance: PANTOPRAZOLE SODIUM
  14. FUROSEMIDE. [Concomitant]
     Active Substance: FUROSEMIDE
  15. KIONEX [Concomitant]
     Active Substance: SODIUM POLYSTYRENE SULFONATE
  16. MIDAZOLAM. [Concomitant]
     Active Substance: MIDAZOLAM

REACTIONS (1)
  - Death [None]

NARRATIVE: CASE EVENT DATE: 20200529
